FAERS Safety Report 19989194 (Version 1)
Quarter: 2021Q4

REPORT INFORMATION
  Report Type: Spontaneous
  Country: US (occurrence: US)
  Receive Date: 20211025
  Receipt Date: 20211025
  Transmission Date: 20220303
  Serious: No
  Sender: FDA-Public Use
  Company Number: US-AMGEN-USASP2021163629

PATIENT
  Age: 76 Year
  Sex: Male

DRUGS (26)
  1. OTEZLA [Suspect]
     Active Substance: APREMILAST
     Indication: Psoriatic arthropathy
     Dosage: 30 MILLIGRAM, BID
     Route: 048
     Dates: start: 20210828
  2. REVLIMID [Concomitant]
     Active Substance: LENALIDOMIDE
  3. ALLOPURINOL [Concomitant]
     Active Substance: ALLOPURINOL
  4. AMOXICILLIN\CLAVULANATE POTASSIUM [Concomitant]
     Active Substance: AMOXICILLIN\CLAVULANATE POTASSIUM
  5. APAP/CODEINE [CODEINE PHOSPHATE;PARACETAMOL] [Concomitant]
  6. CEFUROXIME [Concomitant]
     Active Substance: CEFUROXIME
  7. CEPHALEXIN [Concomitant]
     Active Substance: CEPHALEXIN
  8. CIPROFLOXACIN [Concomitant]
     Active Substance: CIPROFLOXACIN
  9. CLINDAMYCIN [Concomitant]
     Active Substance: CLINDAMYCIN
  10. CLOBETASOL [Concomitant]
     Active Substance: CLOBETASOL
  11. DOXYCYCLINE HYCLATE [Concomitant]
     Active Substance: DOXYCYCLINE HYCLATE
  12. FINASTERIDE [Concomitant]
     Active Substance: FINASTERIDE
  13. FLUTICASONE [Concomitant]
     Active Substance: FLUTICASONE
  14. FUROSEMIDE [Concomitant]
     Active Substance: FUROSEMIDE
  15. GABAPENTIN [Concomitant]
     Active Substance: GABAPENTIN
  16. HUMULIN R [Concomitant]
     Active Substance: INSULIN HUMAN
  17. INSULIN LISPRO PROTAMINE RECOMBINANT [Concomitant]
     Active Substance: INSULIN LISPRO
  18. JARDIANCE [Concomitant]
     Active Substance: EMPAGLIFLOZIN
  19. LOSARTAN POTASSIUM [Concomitant]
     Active Substance: LOSARTAN POTASSIUM
  20. MONTELUKAST [Concomitant]
     Active Substance: MONTELUKAST SODIUM
  21. ASCORBIC ACID\BIOTIN\CALCIUM PANTOTHENATE\CYANOCOBALAMIN\FOLIC ACID\NI [Concomitant]
     Active Substance: ASCORBIC ACID\BIOTIN\CALCIUM PANTOTHENATE\CYANOCOBALAMIN\FOLIC ACID\NIACINAMIDE\PYRIDOXINE HYDROCHLO
  22. ROSUVASTATIN [Concomitant]
     Active Substance: ROSUVASTATIN
  23. SULFAMETHOXAZOLE AND TRIMETHOPRIM [Concomitant]
     Active Substance: SULFAMETHOXAZOLE\TRIMETHOPRIM
  24. TAMSULOSIN [Concomitant]
     Active Substance: TAMSULOSIN
  25. ERGOCALCIFEROL [Concomitant]
     Active Substance: ERGOCALCIFEROL
  26. WARFARIN [Concomitant]
     Active Substance: WARFARIN

REACTIONS (3)
  - Pain in extremity [Unknown]
  - Constipation [Unknown]
  - Nausea [Unknown]

NARRATIVE: CASE EVENT DATE: 20210101
